FAERS Safety Report 5483163-9 (Version None)
Quarter: 2007Q4

REPORT INFORMATION
  Report Type: 
  Country: None (occurrence: None)
  Receive Date: 20071009
  Receipt Date: 20070928
  Transmission Date: 20080405
  Serious: Yes (Death, Hospitalization, Other)
  Sender: FDA-Public Use
  Company Number: 2006-01629

PATIENT
  Age: 66 Year
  Sex: Male

DRUGS (9)
  1. VELCADE [Suspect]
     Indication: MULTIPLE MYELOMA
     Dosage: 1.30 MG/M2,
     Dates: start: 20050501, end: 20060613
  2. DEXAMETHASONE TAB [Suspect]
     Indication: MULTIPLE MYELOMA
     Dosage: 40.00 MG
     Dates: start: 20050501, end: 20060605
  3. ADRIAMYCIN PFS [Suspect]
     Indication: MULTIPLE MYELOMA
     Dosage: 20.00 MG/M2
  4. BACTRIM [Concomitant]
  5. NEXIUM [Concomitant]
  6. AMITRIPTYLINE HCL [Concomitant]
  7. SIMVASTATIN [Concomitant]
  8. NYSTATIN [Concomitant]
  9. VALACYCLOVIR [Concomitant]

REACTIONS (9)
  - BRONCHIOLITIS [None]
  - HERPES ZOSTER [None]
  - HYPOTENSION [None]
  - INFLUENZA [None]
  - PNEUMONIA [None]
  - PNEUMONITIS [None]
  - PULMONARY TOXICITY [None]
  - RESPIRATORY FAILURE [None]
  - TACHYCARDIA [None]
